FAERS Safety Report 5910060-4 (Version None)
Quarter: 2008Q4

REPORT INFORMATION
  Report Type: 
  Country: None (occurrence: None)
  Receive Date: 20081007
  Receipt Date: 20070823
  Transmission Date: 20090506
  Serious: No
  Sender: FDA-Public Use
  Company Number: US-ASTRAZENECA-2007UW20227

PATIENT
  Age: 75 Year
  Sex: Female
  Weight: 70.3 kg

DRUGS (5)
  1. ARIMIDEX [Suspect]
     Indication: BREAST CANCER
     Route: 048
  2. LOPRESSOR [Concomitant]
  3. DIAZIDE [Concomitant]
  4. PAXIL [Concomitant]
  5. LIPITOR [Concomitant]

REACTIONS (4)
  - ARTHRALGIA [None]
  - CLAUSTROPHOBIA [None]
  - HOT FLUSH [None]
  - NAUSEA [None]
